FAERS Safety Report 7225116-6 (Version None)
Quarter: 2011Q1

REPORT INFORMATION
  Report Type: 
  Country: None (occurrence: None)
  Receive Date: 20110113
  Receipt Date: 20101222
  Transmission Date: 20110831
  Serious: Yes (Congenital Anomaly)
  Sender: FDA-Public Use
  Company Number: A0680991A

PATIENT
  Sex: Male
  Weight: 3.5 kg

DRUGS (1)
  1. PAXIL [Suspect]
     Indication: EATING DISORDER
     Dosage: 20MG TWICE PER DAY
     Dates: start: 20000101, end: 20010901

REACTIONS (4)
  - DRUG EXPOSURE DURING PREGNANCY [None]
  - CARDIAC MURMUR [None]
  - CONGENITAL FOOT MALFORMATION [None]
  - SUPRAVENTRICULAR TACHYCARDIA [None]
